FAERS Safety Report 19506932 (Version 1)
Quarter: 2021Q3

REPORT INFORMATION
  Report Type: Spontaneous
  Country: US (occurrence: US)
  Receive Date: 20210708
  Receipt Date: 20210708
  Transmission Date: 20211014
  Serious: Yes (Hospitalization, Other)
  Sender: FDA-Public Use
  Company Number: US-HIKMA PHARMACEUTICALS USA INC.-US-H14001-21-03141

PATIENT
  Sex: Male

DRUGS (2)
  1. PROCAINAMIDE HYDROCHLORIDE. [Suspect]
     Active Substance: PROCAINAMIDE HYDROCHLORIDE
     Indication: CARDIAC FAILURE
     Dosage: UNKNOWN
     Route: 065
  2. AMIODARONE [Suspect]
     Active Substance: AMIODARONE
     Indication: CARDIAC FAILURE
     Dosage: UNKNOWN
     Route: 065

REACTIONS (3)
  - Lung disorder [Recovered/Resolved]
  - Liver disorder [Recovered/Resolved]
  - Thyroid disorder [Not Recovered/Not Resolved]
